FAERS Safety Report 13614513 (Version 1)
Quarter: 2017Q2

REPORT INFORMATION
  Report Type: Spontaneous
  Country: US (occurrence: US)
  Receive Date: 20170606
  Receipt Date: 20170606
  Transmission Date: 20170830
  Serious: No
  Sender: FDA-Public Use
  Company Number: US-VIIV HEALTHCARE LIMITED-US2017GSK084902

PATIENT
  Sex: Male

DRUGS (1)
  1. TRIUMEQ [Suspect]
     Active Substance: ABACAVIR SULFATE\DOLUTEGRAVIR SODIUM\LAMIVUDINE
     Indication: HIV INFECTION
     Dosage: 1 TABLET, 1D

REACTIONS (4)
  - Rash [Recovered/Resolved]
  - Lymphadenopathy [Recovered/Resolved]
  - Ill-defined disorder [Recovered/Resolved]
  - Drug hypersensitivity [Recovered/Resolved]
